FAERS Safety Report 23597211 (Version 1)
Quarter: 2024Q1

REPORT INFORMATION
  Report Type: Spontaneous
  Country: NO (occurrence: NO)
  Receive Date: 20240305
  Receipt Date: 20240305
  Transmission Date: 20240409
  Serious: Yes (Hospitalization, Other)
  Sender: FDA-Public Use
  Company Number: None

PATIENT
  Age: 53 Year
  Sex: Female

DRUGS (3)
  1. EPIRUBICIN HYDROCHLORIDE [Suspect]
     Active Substance: EPIRUBICIN HYDROCHLORIDE
     Indication: Breast cancer
     Dosage: 90 MG/M2 ACCORDING TO THE EC90-PROTOCOL. ROUTE OF ADMIN (FREE TEXT): INTRAVEN?S BRUK, INTRAVESIKAL B
     Route: 065
     Dates: start: 20240105, end: 20240105
  2. CYCLOPHOSPHAMIDE [Suspect]
     Active Substance: CYCLOPHOSPHAMIDE
     Indication: Breast cancer
     Dosage: 600 MG/M2 ACCORDING TO THE EC90-PROTOCOL.
     Route: 041
     Dates: start: 20240105, end: 20240105
  3. ZIEXTENZO [Suspect]
     Active Substance: PEGFILGRASTIM-BMEZ
     Indication: Product used for unknown indication
     Route: 065

REACTIONS (3)
  - Febrile neutropenia [Recovering/Resolving]
  - Antibiotic therapy [Recovering/Resolving]
  - Product availability issue [Recovering/Resolving]

NARRATIVE: CASE EVENT DATE: 20240120
